FAERS Safety Report 6723430-1 (Version None)
Quarter: 2010Q2

REPORT INFORMATION
  Report Type: 
  Country: None (occurrence: None)
  Receive Date: 20100513
  Receipt Date: 20100504
  Transmission Date: 20101027
  Serious: Yes (Other)
  Sender: FDA-Public Use
  Company Number: PHHY2010US16370

PATIENT
  Sex: Female
  Weight: 88.45 kg

DRUGS (9)
  1. RECLAST [Suspect]
     Indication: OSTEOPOROSIS
     Dosage: 5 MG YEARLY
     Route: 042
     Dates: start: 20090420
  2. LEVOXYL [Concomitant]
     Indication: HYPOTHYROIDISM
     Dosage: 75 MCG, QD
     Route: 048
     Dates: start: 20081215
  3. LISINOPRIL [Concomitant]
     Indication: HYPERTENSION
     Dosage: 20 MG, QD
     Route: 048
     Dates: start: 20061226
  4. METOPROLOL [Concomitant]
  5. ZOCOR [Concomitant]
     Indication: HYPERLIPIDAEMIA
     Dosage: 40 MG, QD
     Route: 048
     Dates: start: 20021216
  6. NIASPAN [Concomitant]
     Indication: HYPERLIPIDAEMIA
     Dosage: 750 MG, QD
     Route: 048
     Dates: start: 20080215
  7. DYAZIDE [Concomitant]
     Indication: HYPERTENSION
     Dosage: 37.5-25, QD
     Route: 048
     Dates: start: 20030122
  8. VITAMIN D3 [Concomitant]
  9. COREG [Concomitant]
     Indication: HYPERTENSION
     Dosage: 25 MG, BID
     Route: 048
     Dates: start: 20090303

REACTIONS (7)
  - ARTHRALGIA [None]
  - BLOOD CREATININE INCREASED [None]
  - BLOOD PRESSURE INCREASED [None]
  - BLOOD UREA INCREASED [None]
  - FATIGUE [None]
  - GLOMERULAR FILTRATION RATE DECREASED [None]
  - PROTEIN TOTAL INCREASED [None]
